FAERS Safety Report 4409847-9 (Version None)
Quarter: 2004Q3

REPORT INFORMATION
  Report Type: 
  Country: None (occurrence: None)
  Receive Date: 20040728
  Receipt Date: 20031022
  Transmission Date: 20050211
  Serious: No
  Sender: FDA-Public Use
  Company Number: US-GLAXOSMITHKLINE-A0431171A

PATIENT
  Age: 58 Year
  Sex: Male

DRUGS (4)
  1. DYAZIDE [Suspect]
     Indication: HYPERTENSION
     Dosage: 1CAP THREE TIMES PER WEEK
     Route: 048
  2. LANOXIN [Concomitant]
     Indication: ATRIAL FIBRILLATION
  3. VALIUM [Concomitant]
  4. LOPRESSOR [Concomitant]

REACTIONS (1)
  - TACHYCARDIA [None]
